FAERS Safety Report 23342406 (Version 1)
Quarter: 2023Q4

REPORT INFORMATION
  Report Type: Spontaneous
  Country: RO (occurrence: RO)
  Receive Date: 20231227
  Receipt Date: 20231227
  Transmission Date: 20240110
  Serious: Yes (Other)
  Sender: FDA-Public Use
  Company Number: RO-IMMUNOCORE, LTD-2023-IMC-002122

PATIENT

DRUGS (1)
  1. KIMMTRAK [Suspect]
     Active Substance: TEBENTAFUSP-TEBN
     Indication: Uveal melanoma
     Dosage: UNK
     Dates: start: 20231018, end: 20231114

REACTIONS (2)
  - Neoplasm progression [Unknown]
  - Disease progression [Unknown]
